FAERS Safety Report 7853155-0 (Version None)
Quarter: 2011Q4

REPORT INFORMATION
  Report Type: 
  Country: None (occurrence: None)
  Receive Date: 20111026
  Receipt Date: 20111019
  Transmission Date: 20120403
  Serious: Yes (Hospitalization)
  Sender: FDA-Public Use
  Company Number: US-MERCK-1110USA03261

PATIENT
  Age: 84 Year
  Sex: Female

DRUGS (3)
  1. ZOCOR [Concomitant]
     Route: 048
  2. LISINOPRIL [Concomitant]
     Route: 065
  3. JANUVIA [Suspect]
     Indication: DIABETES MELLITUS
     Route: 048
     Dates: start: 20090101, end: 20110901

REACTIONS (2)
  - ADVERSE EVENT [None]
  - PANCREATITIS ACUTE [None]
